FAERS Safety Report 8019184-1 (Version None)
Quarter: 2012Q1

REPORT INFORMATION
  Report Type: 
  Country: None (occurrence: None)
  Receive Date: 20120103
  Receipt Date: 20111228
  Transmission Date: 20120608
  Serious: Yes (Other)
  Sender: FDA-Public Use
  Company Number: US-JNJFOC-20111210819

PATIENT
  Sex: Female

DRUGS (24)
  1. DOXORUBICIN HCL [Suspect]
     Dosage: EVERY 2 WEEKS
     Route: 042
  2. BEVACIZUMAB [Suspect]
     Dosage: CYCLES 1-4
     Route: 042
  3. BEVACIZUMAB [Suspect]
     Dosage: CYCLES 1-4
     Route: 042
  4. BEVACIZUMAB [Suspect]
     Dosage: CYCLES 1-4
     Route: 042
  5. DOXORUBICIN HCL [Suspect]
     Indication: BREAST CANCER
     Dosage: EVERY 2 WEEKS
     Route: 042
  6. DOXORUBICIN HCL [Suspect]
     Dosage: EVERY 2 WEEKS
     Route: 042
  7. PEGFILGRASTIM [Suspect]
     Route: 058
  8. BEVACIZUMAB [Suspect]
     Indication: BREAST CANCER
     Dosage: CYCLES 1-4
     Route: 042
  9. BEVACIZUMAB [Suspect]
     Dosage: CYCLES 1-4
     Route: 042
  10. PEGFILGRASTIM [Suspect]
     Route: 058
  11. BEVACIZUMAB [Suspect]
     Dosage: CYCLES 1-4
     Route: 042
  12. DOXORUBICIN HCL [Suspect]
     Dosage: EVERY 2 WEEKS
     Route: 042
  13. BEVACIZUMAB [Suspect]
     Dosage: CYCLES 1-4
     Route: 042
  14. CYCLOPHOSPHAMIDE [Suspect]
     Indication: BREAST CANCER
     Route: 042
  15. CYCLOPHOSPHAMIDE [Suspect]
     Dosage: EVERY 2 WEEKS
     Route: 042
  16. PACLITAXEL [Suspect]
     Indication: BREAST CANCER
     Route: 042
  17. PACLITAXEL [Suspect]
     Route: 042
  18. PACLITAXEL [Suspect]
     Route: 042
  19. PACLITAXEL [Suspect]
     Route: 042
  20. PEGFILGRASTIM [Suspect]
     Route: 058
  21. BEVACIZUMAB [Suspect]
     Dosage: CYCLES 1-4
     Route: 042
  22. CYCLOPHOSPHAMIDE [Suspect]
     Route: 042
  23. CYCLOPHOSPHAMIDE [Suspect]
     Route: 042
  24. PEGFILGRASTIM [Suspect]
     Indication: BREAST CANCER
     Route: 058

REACTIONS (1)
  - HYPERTENSION [None]
